FAERS Safety Report 9346348 (Version 1)
Quarter: 2013Q2

REPORT INFORMATION
  Report Type: Spontaneous
  Country: PL (occurrence: PL)
  Receive Date: 20130613
  Receipt Date: 20130613
  Transmission Date: 20140414
  Serious: Yes (Hospitalization)
  Sender: FDA-Public Use
  Company Number: PL-B.I. PHARMACEUTICALS,INC./RIDGEFIELD-2013-AP-00469AP

PATIENT
  Age: 73 Year
  Sex: Male

DRUGS (11)
  1. PRADAXA [Suspect]
     Indication: ATRIAL FIBRILLATION
     Dosage: 300 MG
     Route: 048
     Dates: start: 20130121, end: 20130404
  2. ASA / ACETYLSALICYLIC ACID [Concomitant]
     Indication: MYOCARDIAL ISCHAEMIA
     Dosage: 75 MG
     Route: 048
     Dates: start: 20130117
  3. AXTIL / RAMIPRILE [Concomitant]
     Indication: CARDIAC FAILURE
     Dosage: 5 MG
     Route: 048
     Dates: start: 20130117
  4. DIURESIN SR [Concomitant]
     Indication: CARDIAC FAILURE
     Dosage: 1.5 MG
     Route: 048
     Dates: start: 20130117
  5. KALDYUM / POTASSIUM CHLORIDE [Concomitant]
     Indication: CARDIAC FAILURE
     Dosage: 4 MG
     Route: 048
     Dates: start: 20130117
  6. INSPRA / EPLERENON [Concomitant]
     Indication: CARDIAC FAILURE
     Dosage: 50 MG
     Route: 048
     Dates: start: 20130117
  7. ZOCOR / SIMVASTATIN [Concomitant]
     Indication: MYOCARDIAL ISCHAEMIA
     Dosage: 20 MG
     Route: 048
     Dates: start: 20130117
  8. ZOCOR / SIMVASTATIN [Concomitant]
     Indication: ARTERIOSCLEROSIS
  9. NOLPAZA / PANTOPRAZOL [Concomitant]
     Dosage: 40 MG
     Route: 048
     Dates: start: 20130117
  10. EUTHYROX / LEVOTHYROXINE [Concomitant]
     Indication: THYROID DISORDER
     Dosage: 50 MG
     Route: 048
     Dates: start: 20130117
  11. METOCARD / METOPROLOL [Concomitant]
     Indication: CARDIAC FAILURE
     Dosage: 50 MG
     Route: 048
     Dates: start: 20130117

REACTIONS (2)
  - Tubulointerstitial nephritis [Recovered/Resolved with Sequelae]
  - Renal failure [Recovered/Resolved with Sequelae]
